FAERS Safety Report 4270689-9 (Version None)
Quarter: 2004Q1

REPORT INFORMATION
  Report Type: 
  Country: None (occurrence: None)
  Receive Date: 20040113
  Receipt Date: 20031229
  Transmission Date: 20041129
  Serious: Yes (Hospitalization)
  Sender: FDA-Public Use
  Company Number: 189390

PATIENT
  Age: 42 Year
  Sex: Female
  Weight: 61.6892 kg

DRUGS (5)
  1. AVONEX [Suspect]
     Indication: MULTIPLE SCLEROSIS
     Dosage: 30 MCG QW IM
     Route: 030
     Dates: start: 19991201
  2. KLONOPIN [Concomitant]
  3. NEURONTIN [Concomitant]
  4. ELAVIL [Concomitant]
  5. DEMEROL [Concomitant]

REACTIONS (7)
  - DEPRESSION [None]
  - DRUG TOXICITY [None]
  - FALL [None]
  - HEADACHE [None]
  - INFLUENZA LIKE ILLNESS [None]
  - LOSS OF CONSCIOUSNESS [None]
  - PAIN [None]
